FAERS Safety Report 16266435 (Version 1)
Quarter: 2019Q2

REPORT INFORMATION
  Report Type: Report from Study
  Country: US (occurrence: US)
  Receive Date: 20190502
  Receipt Date: 20190502
  Transmission Date: 20190711
  Serious: Yes (Other)
  Sender: FDA-Public Use
  Company Number: US-JNJFOC-20190442580

PATIENT
  Age: 63 Year
  Sex: Female

DRUGS (19)
  1. ZOVIRAX [Concomitant]
     Active Substance: ACYCLOVIR
  2. NEXAVAR [Concomitant]
     Active Substance: SORAFENIB
  3. TESSALON [Concomitant]
     Active Substance: BENZONATATE
  4. NOXAFIL [Concomitant]
     Active Substance: POSACONAZOLE
  5. FISH OIL [Concomitant]
     Active Substance: FISH OIL
  6. NORCO [Concomitant]
     Active Substance: ACETAMINOPHEN\HYDROCODONE BITARTRATE
  7. ESTRACE [Concomitant]
     Active Substance: ESTRADIOL
  8. LOPID [Concomitant]
     Active Substance: GEMFIBROZIL
  9. LASIX [Concomitant]
     Active Substance: FUROSEMIDE
  10. IMBRUVICA [Suspect]
     Active Substance: IBRUTINIB
     Indication: CHRONIC GRAFT VERSUS HOST DISEASE
     Route: 048
     Dates: start: 20180829
  11. PROGRAF [Concomitant]
     Active Substance: TACROLIMUS\TACROLIMUS ANHYDROUS
  12. JAKAFI [Concomitant]
     Active Substance: RUXOLITINIB
  13. NEURONTIN [Concomitant]
     Active Substance: GABAPENTIN
  14. VOLTAREN [Concomitant]
     Active Substance: DICLOFENAC SODIUM
  15. VANCOCIN [Concomitant]
     Active Substance: VANCOMYCIN HYDROCHLORIDE
  16. BACTRIM [Concomitant]
     Active Substance: SULFAMETHOXAZOLE\TRIMETHOPRIM
  17. DOCUSATE SODIUM. [Concomitant]
     Active Substance: DOCUSATE SODIUM
  18. CLONIDINE. [Concomitant]
     Active Substance: CLONIDINE
  19. PREDNISONE. [Suspect]
     Active Substance: PREDNISONE
     Indication: PRODUCT USED FOR UNKNOWN INDICATION
     Route: 065

REACTIONS (5)
  - Increased tendency to bruise [Not Recovered/Not Resolved]
  - Petechiae [Not Recovered/Not Resolved]
  - Skin atrophy [Not Recovered/Not Resolved]
  - Head injury [Not Recovered/Not Resolved]
  - Porphyria [Not Recovered/Not Resolved]

NARRATIVE: CASE EVENT DATE: 20180924
